FAERS Safety Report 5915725-6 (Version None)
Quarter: 2008Q4

REPORT INFORMATION
  Report Type: 
  Country: None (occurrence: None)
  Receive Date: 20081010
  Receipt Date: 20081001
  Transmission Date: 20090506
  Serious: Yes (Hospitalization)
  Sender: FDA-Public Use
  Company Number: FR-ASTRAZENECA-2008CG01434

PATIENT
  Age: 19389 Day
  Sex: Female

DRUGS (8)
  1. DIPRIVAN [Suspect]
     Indication: ANAESTHESIA
     Route: 042
     Dates: start: 20080428, end: 20080428
  2. NIMBEX [Suspect]
     Indication: ANAESTHESIA
     Route: 042
     Dates: start: 20080428, end: 20080428
  3. HYPNOVEL [Suspect]
     Indication: ANAESTHESIA
     Route: 042
     Dates: start: 20080428, end: 20080428
  4. EPHEDRINE AGUETTANT [Suspect]
     Indication: PREMEDICATION
     Route: 042
     Dates: start: 20080428, end: 20080428
  5. VANCOMYCIN SANDOZ [Suspect]
     Route: 042
     Dates: start: 20080428, end: 20080428
  6. SUFENTA PRESERVATIVE FREE [Concomitant]
     Indication: ANAESTHESIA
     Route: 042
     Dates: start: 20080428, end: 20080428
  7. SUFENTA PRESERVATIVE FREE [Concomitant]
     Route: 042
     Dates: start: 20080428, end: 20080428
  8. SUFENTA PRESERVATIVE FREE [Concomitant]
     Route: 042
     Dates: start: 20080428, end: 20080428

REACTIONS (3)
  - DRUG HYPERSENSITIVITY [None]
  - HYPOTENSION [None]
  - RASH [None]
